FAERS Safety Report 8437105-4 (Version None)
Quarter: 2012Q2

REPORT INFORMATION
  Report Type: 
  Country: None (occurrence: None)
  Receive Date: 20120323
  Receipt Date: 20110616
  Transmission Date: 20120825
  Serious: Yes (Other)
  Sender: FDA-Public Use
  Company Number: 163-21880-11062403

PATIENT
  Age: 80 Year
  Sex: Female
  Weight: 57 kg

DRUGS (12)
  1. ACYCLOVIR [Concomitant]
  2. CATAPRES [Concomitant]
  3. IRON (IRON) [Concomitant]
  4. NIFEDICAL (NIFEDIPINE) [Concomitant]
  5. PREVACID [Concomitant]
  6. SPIRIVIA (TIOTROPIUM BROMIDE) [Concomitant]
  7. TRAMADOL HCL [Concomitant]
  8. REVLIMID [Suspect]
     Indication: MULTIPLE MYELOMA
     Dosage: 10 MG, DAILY, DAYS 1-21, PO; 5 MG, DAILY, DAYS 1-21, PO
     Route: 048
     Dates: start: 20071101, end: 20110616
  9. REVLIMID [Suspect]
     Indication: MULTIPLE MYELOMA
     Dosage: 10 MG, DAILY, DAYS 1-21, PO; 5 MG, DAILY, DAYS 1-21, PO
     Route: 048
     Dates: start: 20110601
  10. LEVOTHYROXINE SODIUM [Concomitant]
  11. MULTI-VITAMINS [Concomitant]
  12. ASPIRIN [Concomitant]

REACTIONS (5)
  - CONDITION AGGRAVATED [None]
  - ARTHRITIS [None]
  - THROMBOSIS [None]
  - GAIT DISTURBANCE [None]
  - PHLEBITIS [None]
